FAERS Safety Report 16084958 (Version 1)
Quarter: 2019Q2

REPORT INFORMATION
  Report Type: Spontaneous
  Country: US (occurrence: US)
  Receive Date: 20190318
  Receipt Date: 20190318
  Transmission Date: 20190711
  Serious: Yes (Hospitalization)
  Sender: FDA-Public Use
  Company Number: None

PATIENT
  Age: 64 Year
  Sex: Male

DRUGS (18)
  1. LEVOTHYROXINE. [Concomitant]
     Active Substance: LEVOTHYROXINE
  2. PRAVASTATIN. [Concomitant]
     Active Substance: PRAVASTATIN
  3. TYLENOL [Concomitant]
     Active Substance: ACETAMINOPHEN
  4. HYDROXYZINE [Concomitant]
     Active Substance: HYDROXYZINE HYDROCHLORIDE
  5. SERTRALINE [Concomitant]
     Active Substance: SERTRALINE HYDROCHLORIDE
  6. FISH OIL [Concomitant]
     Active Substance: FISH OIL
  7. ASPIRIN. [Concomitant]
     Active Substance: ASPIRIN
  8. FLUTICASONE. [Concomitant]
     Active Substance: FLUTICASONE
  9. LOVENOX [Concomitant]
     Active Substance: ENOXAPARIN SODIUM
  10. BUSPIRONE [Concomitant]
     Active Substance: BUSPIRONE HYDROCHLORIDE
  11. VITAMIN C [Concomitant]
     Active Substance: ASCORBIC ACID
  12. SELENIUM [Concomitant]
     Active Substance: SELENIUM
  13. STOOL SOFTENER (DOCUSATE) [Concomitant]
     Active Substance: DOCUSATE
  14. TOPIRAMATE. [Concomitant]
     Active Substance: TOPIRAMATE
  15. VOTRIENT [Suspect]
     Active Substance: PAZOPANIB HYDROCHLORIDE
     Indication: RENAL CANCER
     Route: 048
     Dates: start: 20170927
  16. VITAMIN B12 [Concomitant]
     Active Substance: CYANOCOBALAMIN
  17. FUROSEMIDE. [Concomitant]
     Active Substance: FUROSEMIDE
  18. SODIUM BICARB [Concomitant]
     Active Substance: SODIUM BICARBONATE

REACTIONS (2)
  - Pulmonary thrombosis [None]
  - Therapy cessation [None]

NARRATIVE: CASE EVENT DATE: 20190315
